FAERS Safety Report 8347244-4 (Version None)
Quarter: 2012Q1

REPORT INFORMATION
  Report Type: 
  Country: None (occurrence: None)
  Receive Date: 20120315
  Receipt Date: 20110317
  Transmission Date: 20120608
  Serious: No
  Sender: FDA-Public Use
  Company Number: PHHY2010US90120

PATIENT
  Age: 41 Year
  Sex: Female

DRUGS (6)
  1. VALIUM [Concomitant]
  2. ADDERALL 10 [Concomitant]
  3. CLONAZEPAM [Concomitant]
  4. GILENYA [Suspect]
     Indication: RELAPSING-REMITTING MULTIPLE SCLEROSIS
     Dosage: 0.5 MG, QD, ORAL
     Route: 048
     Dates: start: 20101220
  5. MILNACIPRAN HYDROCHLORIDE (MILNACIPRAN HYDROCHLORIDE) [Concomitant]
  6. BACLOFEN [Concomitant]

REACTIONS (4)
  - BLOOD SODIUM DECREASED [None]
  - LYMPHOCYTE COUNT DECREASED [None]
  - BLOOD CHLORIDE DECREASED [None]
  - RASH GENERALISED [None]
